FAERS Safety Report 8339411-0 (Version None)
Quarter: 2012Q2

REPORT INFORMATION
  Report Type: 
  Country: None (occurrence: None)
  Receive Date: 20120507
  Receipt Date: 20120425
  Transmission Date: 20120825
  Serious: Yes (Congenital Anomaly)
  Sender: FDA-Public Use
  Company Number: GB-TEVA-334859ISR

PATIENT
  Weight: 2.54 kg

DRUGS (1)
  1. QUETIAPINE [Suspect]
     Indication: PERSONALITY DISORDER
     Route: 064

REACTIONS (1)
  - CLEFT LIP AND PALATE [None]
